APPROVED DRUG PRODUCT: CROMOLYN SODIUM
Active Ingredient: CROMOLYN SODIUM
Strength: 5.2MG/SPRAY
Dosage Form/Route: SPRAY, METERED;NASAL
Application: A077976 | Product #001
Applicant: HH AND P LLC
Approved: Sep 7, 2007 | RLD: No | RS: No | Type: DISCN